FAERS Safety Report 5082103-4 (Version None)
Quarter: 2006Q3

REPORT INFORMATION
  Report Type: 
  Country: None (occurrence: None)
  Receive Date: 20060817
  Receipt Date: 20060728
  Transmission Date: 20061208
  Serious: Yes (Other)
  Sender: FDA-Public Use
  Company Number: FR-JNJFOC-20060702787

PATIENT
  Sex: Female

DRUGS (5)
  1. HALDOL [Suspect]
     Indication: DELIRIUM
     Route: 048
  2. HALDOL [Suspect]
     Indication: PSYCHOTIC DISORDER
     Route: 048
  3. LEPTICUR [Concomitant]
  4. PREVISCAN [Concomitant]
     Indication: PHLEBITIS
  5. DITROPAN [Concomitant]
     Indication: URINARY INCONTINENCE

REACTIONS (3)
  - BRADYCARDIA [None]
  - ELECTROCARDIOGRAM QT PROLONGED [None]
  - OVERDOSE [None]
